FAERS Safety Report 6393120-6 (Version None)
Quarter: 2009Q4

REPORT INFORMATION
  Report Type: 
  Country: None (occurrence: None)
  Receive Date: 20091008
  Receipt Date: 20090929
  Transmission Date: 20100525
  Serious: Yes (Life-Threatening, Hospitalization)
  Sender: FDA-Public Use
  Company Number: FR-ELI_LILLY_AND_COMPANY-FR200909000756

PATIENT
  Age: 63 Year
  Sex: Male

DRUGS (16)
  1. BYETTA [Suspect]
     Indication: INSULIN-REQUIRING TYPE 2 DIABETES MELLITUS
     Dosage: 5 UG, 2/D
     Route: 058
     Dates: start: 20090706, end: 20090805
  2. BYETTA [Suspect]
     Dosage: 10 UG, 2/D
     Route: 058
     Dates: start: 20090806
  3. STAGID [Concomitant]
     Indication: DIABETES MELLITUS
     Dosage: 1 D/F, 3/D
     Route: 048
  4. KARDEGIC [Concomitant]
     Dosage: UNK, UNKNOWN
     Route: 065
  5. RAMIPRIL [Concomitant]
     Dosage: 10 MG, DAILY (1/D)
     Route: 048
  6. LOXEN [Concomitant]
     Dosage: 50 MG, DAILY (1/D)
     Route: 048
  7. EUPRESSYL [Concomitant]
     Dosage: UNK, UNKNOWN
     Route: 048
  8. ZOLPIDEM [Concomitant]
     Dosage: 10 MG, DAILY (1/D)
     Route: 065
  9. DIAMICRON [Concomitant]
     Dosage: 2 D/F, EACH MORNING
     Route: 048
  10. EZETROL [Concomitant]
     Dosage: 10 MG, DAILY (1/D)
  11. CRESTOR [Concomitant]
     Dosage: 5 MG, DAILY (1/D)
  12. ALLOPURINOL [Concomitant]
     Dosage: 300 MG, DAILY (1/D)
  13. BROMAZEPAM [Concomitant]
     Dosage: 8 MG, OTHER 3MG IN THE MORNING, 2MG AT MIDDAY AND IN THE EVENING
  14. POTASSIUM CHLORIDE [Concomitant]
     Dosage: 1000 MG, 2/D
  15. INDAPAMIDE [Concomitant]
     Route: 048
  16. GLICLAZIDE [Concomitant]

REACTIONS (1)
  - COLITIS ISCHAEMIC [None]
